FAERS Safety Report 15897280 (Version 1)
Quarter: 2019Q1

REPORT INFORMATION
  Report Type: Spontaneous
  Country: US (occurrence: US)
  Receive Date: 20190131
  Receipt Date: 20190131
  Transmission Date: 20190417
  Serious: No
  Sender: FDA-Public Use
  Company Number: US-GE HEALTHCARE LIFE SCIENCES-2019CSU000103

PATIENT

DRUGS (4)
  1. TECHNETIUM TC 99M [Suspect]
     Active Substance: TECHNETIUM TC-99M
     Indication: PRODUCT USED FOR UNKNOWN INDICATION
  2. MYOVIEW [Suspect]
     Active Substance: TECHNETIUM TC-99M TETROFOSMIN
     Indication: IMAGING PROCEDURE
     Dosage: UNK, SINGLE
     Route: 065
     Dates: start: 201812, end: 201812
  3. MYOVIEW [Suspect]
     Active Substance: TECHNETIUM TC-99M TETROFOSMIN
     Indication: PRODUCT USED FOR UNKNOWN INDICATION
  4. TECHNETIUM TC 99M [Suspect]
     Active Substance: TECHNETIUM TC-99M
     Indication: IMAGING PROCEDURE
     Dosage: UNK, SINGLE
     Route: 065
     Dates: start: 201812, end: 201812

REACTIONS (2)
  - Drug ineffective [Recovered/Resolved]
  - No adverse event [Recovered/Resolved]

NARRATIVE: CASE EVENT DATE: 201812
